FAERS Safety Report 6169020-3 (Version None)
Quarter: 2009Q2

REPORT INFORMATION
  Report Type: 
  Country: None (occurrence: None)
  Receive Date: 20090427
  Receipt Date: 20090421
  Transmission Date: 20091009
  Serious: No
  Sender: FDA-Public Use
  Company Number: US-B.I. PHARMACEUTICALS,INC./RIDGEFIELD-2009-BP-05046BP

PATIENT
  Sex: Male

DRUGS (4)
  1. ATROVENT HFA [Suspect]
     Indication: EMPHYSEMA
     Dosage: 68MCG
     Route: 055
     Dates: start: 20090401
  2. ATROVENT HFA [Suspect]
     Indication: CHRONIC OBSTRUCTIVE PULMONARY DISEASE
  3. UNKNOWN DIABETIC PILL [Concomitant]
     Indication: DIABETES MELLITUS
  4. UNKNOWN HIGH BLOOD PRESSURE PILL [Concomitant]
     Indication: HYPERTENSION

REACTIONS (2)
  - DIZZINESS [None]
  - MEDICATION ERROR [None]
